FAERS Safety Report 21853472 (Version 3)
Quarter: 2023Q1

REPORT INFORMATION
  Report Type: Spontaneous
  Country: US (occurrence: US)
  Receive Date: 20230112
  Receipt Date: 20230120
  Transmission Date: 20230418
  Serious: Yes (Other)
  Sender: FDA-Public Use
  Company Number: US-SANOFI-01438672

PATIENT
  Age: 25 Year
  Sex: Female

DRUGS (1)
  1. LANTUS SOLOSTAR [Suspect]
     Active Substance: INSULIN GLARGINE
     Indication: Type 1 diabetes mellitus
     Dosage: 17 IU, QD

REACTIONS (3)
  - Diabetes mellitus inadequate control [Recovered/Resolved]
  - Blood glucose decreased [Unknown]
  - Device defective [Unknown]
